FAERS Safety Report 19217669 (Version 1)
Quarter: 2021Q2

REPORT INFORMATION
  Report Type: Spontaneous
  Country: US (occurrence: US)
  Receive Date: 20210505
  Receipt Date: 20210505
  Transmission Date: 20210717
  Serious: Yes (Other)
  Sender: FDA-Public Use
  Company Number: US-MYLANLABS-2021M1025884

PATIENT
  Sex: Male

DRUGS (3)
  1. MUSE [Suspect]
     Active Substance: ALPROSTADIL
     Dosage: AS NEEDED
     Route: 066
  2. MUSE [Suspect]
     Active Substance: ALPROSTADIL
     Indication: ERECTILE DYSFUNCTION
     Dosage: AS NEEDED
     Route: 066
  3. INCRUSE ELLIPTA [Concomitant]
     Active Substance: UMECLIDINIUM BROMIDE
     Dosage: UNK

REACTIONS (1)
  - Therapeutic product effect incomplete [Not Recovered/Not Resolved]
